FAERS Safety Report 16724859 (Version 14)
Quarter: 2021Q1

REPORT INFORMATION
  Report Type: Report from Study
  Country: PA (occurrence: PA)
  Receive Date: 20190821
  Receipt Date: 20210225
  Transmission Date: 20210419
  Serious: Yes (Hospitalization, Other)
  Sender: FDA-Public Use
  Company Number: PA-INCYTE CORPORATION-2019IN008489

PATIENT

DRUGS (7)
  1. JAKAVI [Suspect]
     Active Substance: RUXOLITINIB
     Dosage: 5 MG
     Route: 065
  2. JAKAVI [Suspect]
     Active Substance: RUXOLITINIB
     Indication: WHITE BLOOD CELL COUNT INCREASED
     Dosage: 3 DF, BID (3 TABLETS OF 5 MG)
     Route: 065
  3. JAKAVI [Suspect]
     Active Substance: RUXOLITINIB
     Dosage: 30 MG, BID
     Route: 048
     Dates: start: 201709
  4. CROMATONBIC FERRO [FERROUS LACTATE] [Concomitant]
     Indication: PRODUCT USED FOR UNKNOWN INDICATION
     Dosage: 1 DF (AMPOULE), QD
     Route: 065
  5. DOXAZOSIN [Concomitant]
     Active Substance: DOXAZOSIN MESYLATE
     Indication: PRODUCT USED FOR UNKNOWN INDICATION
     Dosage: 2 MG
     Route: 065
  6. JAKAVI [Suspect]
     Active Substance: RUXOLITINIB
     Dosage: 3 DF, BID (6 DF (3 IN THE MORNING AND 3 AT NIGHT EVERY 8 HOURS)
     Route: 065
  7. JAKAVI [Suspect]
     Active Substance: RUXOLITINIB
     Indication: PRIMARY MYELOFIBROSIS
     Dosage: 4 DF (2 TABLETS OF 5 MG AND 2 TABLETS OF 10 MG)
     Route: 065

REACTIONS (21)
  - Agitation [Not Recovered/Not Resolved]
  - Visual impairment [Unknown]
  - Blindness unilateral [Unknown]
  - Eye injury [Not Recovered/Not Resolved]
  - Gait disturbance [Unknown]
  - Product dose omission issue [Unknown]
  - Movement disorder [Unknown]
  - Dizziness [Not Recovered/Not Resolved]
  - Cardiac disorder [Unknown]
  - COVID-19 [Recovering/Resolving]
  - Vision blurred [Unknown]
  - Fatigue [Recovering/Resolving]
  - Cardiac failure [Unknown]
  - Asthma [Recovering/Resolving]
  - Haemoglobin decreased [Unknown]
  - Malaise [Unknown]
  - Cataract [Not Recovered/Not Resolved]
  - Depressed mood [Recovering/Resolving]
  - Speech disorder [Unknown]
  - Syncope [Unknown]
  - Incorrect dose administered [Unknown]

NARRATIVE: CASE EVENT DATE: 20201230
